FAERS Safety Report 22537115 (Version 2)
Quarter: 2023Q2

REPORT INFORMATION
  Report Type: Spontaneous
  Country: CA (occurrence: CA)
  Receive Date: 20230608
  Receipt Date: 20230619
  Transmission Date: 20230722
  Serious: Yes (Other)
  Sender: FDA-Public Use
  Company Number: CA-TEVA-2023-CA-2893762

PATIENT
  Age: 37 Year
  Sex: Male

DRUGS (7)
  1. GABAPENTIN [Suspect]
     Active Substance: GABAPENTIN
     Indication: Drug use disorder
     Dosage: 1200 MILLIGRAM DAILY;
     Route: 065
  2. NYQUIL NOS [Suspect]
     Active Substance: ACETAMINOPHEN\CHLORPHENIRAMINE\DEXTROMETHORPHAN\DIPHENHYDRAMINE\DOXYLAMINE\PSEUDOEPHEDRINE
     Indication: Insomnia
     Dosage: HE REPORTED USING 2-3 BOTTLES (354ML BOTTLES, 354MG DEXTROMETHORPHAN) NIGHTLY FOR 3 YEARS
     Route: 065
  3. NYQUIL NOS [Suspect]
     Active Substance: ACETAMINOPHEN\CHLORPHENIRAMINE\DEXTROMETHORPHAN\DIPHENHYDRAMINE\DOXYLAMINE\PSEUDOEPHEDRINE
     Indication: Anxiety
  4. NALTREXONE [Concomitant]
     Active Substance: NALTREXONE
     Indication: Drug use disorder
     Dosage: 25 MILLIGRAM DAILY;
     Route: 065
  5. NALTREXONE [Concomitant]
     Active Substance: NALTREXONE
     Dosage: 50 MILLIGRAM DAILY;
     Route: 065
  6. NALTREXONE [Concomitant]
     Active Substance: NALTREXONE
     Dosage: 100 MILLIGRAM DAILY;
     Route: 065
  7. MIRTAZAPINE [Concomitant]
     Active Substance: MIRTAZAPINE
     Indication: Depression
     Route: 065

REACTIONS (4)
  - Rebound effect [Recovering/Resolving]
  - Sedation [Unknown]
  - Intentional overdose [Unknown]
  - Intentional product misuse [Unknown]
